FAERS Safety Report 4530430-9 (Version None)
Quarter: 2004Q4

REPORT INFORMATION
  Report Type: 
  Country: None (occurrence: None)
  Receive Date: 20041215
  Receipt Date: 20041207
  Transmission Date: 20050328
  Serious: Yes (Death, Other)
  Sender: FDA-Public Use
  Company Number: 2004-12-0203

PATIENT
  Age: 78 Year
  Sex: Male

DRUGS (1)
  1. NASONEX [Suspect]
     Indication: NASAL CONGESTION
     Dosage: NASAL SPRAY
     Route: 045

REACTIONS (5)
  - CARCINOMA [None]
  - CAROTID ARTERY STENOSIS [None]
  - HYPERTENSION [None]
  - POST PROCEDURAL COMPLICATION [None]
  - SCAR [None]
